FAERS Safety Report 7031269 (Version 2)
Quarter: 2015Q1

REPORT INFORMATION
  Report Type: Spontaneous
  Country: CN (occurrence: CN)
  Receive Date: 20090623
  Receipt Date: 20150113
  Transmission Date: 20150721
  Serious: Yes (Other)
  Sender: FDA-Public Use
  Company Number: CN-ROCHE-468215

PATIENT
  Age: 33 Year
  Sex: Female

DRUGS (5)
  1. CALCIUM GLUCONATE. [Concomitant]
     Active Substance: CALCIUM GLUCONATE
     Indication: IMPETIGO HERPETIFORMIS
     Dosage: DRUG: GLUCOBIOGEN.
     Route: 041
  2. CEFTRIAXONE SODIUM. [Suspect]
     Active Substance: CEFTRIAXONE SODIUM
     Indication: IMPETIGO HERPETIFORMIS
     Route: 041
  3. DEXAMETHASONE. [Concomitant]
     Active Substance: DEXAMETHASONE
     Indication: IMPETIGO HERPETIFORMIS
     Route: 041
  4. VITAMIN C [Concomitant]
     Active Substance: ASCORBIC ACID
     Indication: IMPETIGO HERPETIFORMIS
     Route: 041
  5. CALAMINE LOTION [Concomitant]
     Active Substance: CALAMINE LOTION
     Indication: IMPETIGO HERPETIFORMIS
     Route: 065

REACTIONS (2)
  - Impetigo herpetiformis [Unknown]
  - Pyrexia [Recovering/Resolving]
